FAERS Safety Report 8367487-3 (Version None)
Quarter: 2012Q2

REPORT INFORMATION
  Report Type: 
  Country: None (occurrence: None)
  Receive Date: 20120517
  Receipt Date: 20120309
  Transmission Date: 20120825
  Serious: No
  Sender: FDA-Public Use
  Company Number: US-GLAXOSMITHKLINE-A0969861A

PATIENT
  Age: 72 Year
  Sex: Male

DRUGS (4)
  1. RADIATION THERAPY [Suspect]
  2. PLAVIX [Suspect]
     Indication: PRODUCT USED FOR UNKNOWN INDICATION
     Route: 065
  3. VOTRIENT [Suspect]
     Indication: PRODUCT USED FOR UNKNOWN INDICATION
     Dosage: 800MG PER DAY
     Route: 048
     Dates: start: 20120305
  4. ASPIRIN [Suspect]
     Indication: PRODUCT USED FOR UNKNOWN INDICATION
     Dosage: 81MG PER DAY
     Route: 048

REACTIONS (4)
  - CONTUSION [None]
  - BLOOD PRESSURE INCREASED [None]
  - VOMITING [None]
  - MUSCULAR WEAKNESS [None]
